FAERS Safety Report 8257343-3 (Version None)
Quarter: 2012Q2

REPORT INFORMATION
  Report Type: 
  Country: None (occurrence: None)
  Receive Date: 20120403
  Receipt Date: 20120328
  Transmission Date: 20120825
  Serious: Yes (Hospitalization, Other)
  Sender: FDA-Public Use
  Company Number: IT-ABBOTT-12P-083-0906572-00

PATIENT
  Sex: Female
  Weight: 9.18 kg

DRUGS (4)
  1. IBUPROFEN [Suspect]
  2. CLARITHROMYCIN [Suspect]
     Indication: PHARYNGITIS
     Dosage: DAILY DOSE 12ML (125MG/5ML)
     Route: 048
     Dates: start: 20120206, end: 20120210
  3. IBUPROFEN [Suspect]
     Indication: TRACHEITIS
     Route: 048
     Dates: start: 20120206, end: 20120210
  4. CLARITHROMYCIN [Suspect]

REACTIONS (3)
  - DEHYDRATION [None]
  - VOMITING [None]
  - DIARRHOEA [None]
